FAERS Safety Report 10267123 (Version 4)
Quarter: 2014Q4

REPORT INFORMATION
  Report Type: Spontaneous
  Country: US (occurrence: US)
  Receive Date: 20140630
  Receipt Date: 20141023
  Transmission Date: 20150528
  Serious: Yes (Other)
  Sender: FDA-Public Use
  Company Number: US-BEH-2014043421

PATIENT
  Sex: Male
  Weight: 94 kg

DRUGS (2)
  1. CLINDAMYCIN [Suspect]
     Active Substance: CLINDAMYCIN\CLINDAMYCIN PHOSPHATE
  2. HIZENTRA [Suspect]
     Active Substance: HUMAN IMMUNOGLOBULIN G
     Indication: IMMUNODEFICIENCY COMMON VARIABLE

REACTIONS (6)
  - Sinus operation [Unknown]
  - Rhinitis [Unknown]
  - Nasal disorder [Unknown]
  - Dehydration [Unknown]
  - Diarrhoea [Unknown]
  - Infusion site urticaria [Unknown]
